FAERS Safety Report 7501610-5 (Version None)
Quarter: 2011Q2

REPORT INFORMATION
  Report Type: 
  Country: None (occurrence: None)
  Receive Date: 20110524
  Receipt Date: 20110517
  Transmission Date: 20111010
  Serious: Yes (Other)
  Sender: FDA-Public Use
  Company Number: US-RB-027361-11

PATIENT
  Age: 39 Year
  Sex: Female

DRUGS (1)
  1. SUBOXONE [Suspect]
     Indication: PRODUCT USED FOR UNKNOWN INDICATION
     Dosage: SUBLINGUAL FILM
     Route: 065

REACTIONS (8)
  - PNEUMONIA [None]
  - OEDEMA PERIPHERAL [None]
  - DYSURIA [None]
  - CARDIAC FAILURE CONGESTIVE [None]
  - COUGH [None]
  - RIB FRACTURE [None]
  - PANIC ATTACK [None]
  - FATIGUE [None]
